FAERS Safety Report 23208113 (Version 2)
Quarter: 2023Q4

REPORT INFORMATION
  Report Type: Spontaneous
  Country: US (occurrence: US)
  Receive Date: 20231121
  Receipt Date: 20231219
  Transmission Date: 20240110
  Serious: Yes (Other)
  Sender: FDA-Public Use
  Company Number: US-ALK-ABELLO A/S-2023AA004152

PATIENT

DRUGS (24)
  1. DERMATOPHAGOIDES FARINAE [Suspect]
     Active Substance: DERMATOPHAGOIDES FARINAE
     Indication: Product used for unknown indication
     Dosage: UNK
     Dates: start: 202208
  2. DERMATOPHAGOIDES PTERONYSSINUS [Suspect]
     Active Substance: DERMATOPHAGOIDES PTERONYSSINUS
     Indication: Product used for unknown indication
     Dosage: UNK
     Dates: start: 202208
  3. BLATTELLA GERMANICA\PERIPLANETA AMERICANA [Suspect]
     Active Substance: BLATTELLA GERMANICA\PERIPLANETA AMERICANA
     Indication: Product used for unknown indication
     Dosage: UNK
     Dates: start: 202208
  4. ALTERNARIA ALTERNATA [Suspect]
     Active Substance: ALTERNARIA ALTERNATA
     Indication: Product used for unknown indication
     Dosage: UNK
     Dates: start: 202208
  5. ASPERGILLUS FUMIGATUS [Suspect]
     Active Substance: ASPERGILLUS FUMIGATUS
     Indication: Product used for unknown indication
     Dosage: UNK
     Dates: start: 202208
  6. TRICHOPHYTON MENTAGROPHYTES [Suspect]
     Active Substance: TRICHOPHYTON MENTAGROPHYTES
     Indication: Product used for unknown indication
     Dosage: UNK
     Dates: start: 202208
  7. ANAS PLATYRHYNCHOS FEATHER\ANSER ANSER FEATHER\GALLUS GALLUS FEATHER [Suspect]
     Active Substance: ANAS PLATYRHYNCHOS FEATHER\ANSER ANSER FEATHER\GALLUS GALLUS FEATHER
     Indication: Product used for unknown indication
     Dosage: UNK
     Dates: start: 202208
  8. FELIS CATUS HAIR [Suspect]
     Active Substance: FELIS CATUS HAIR
     Indication: Product used for unknown indication
     Dosage: UNK
     Dates: start: 202208
  9. MUS MUSCULUS SKIN [Suspect]
     Active Substance: MUS MUSCULUS SKIN
     Indication: Product used for unknown indication
     Dosage: UNK
     Dates: start: 202208
  10. PLANTAGO LANCEOLATA POLLEN [Suspect]
     Active Substance: PLANTAGO LANCEOLATA POLLEN
     Indication: Product used for unknown indication
     Dosage: UNK
     Dates: start: 202208
  11. ARTEMISIA VULGARIS POLLEN [Suspect]
     Active Substance: ARTEMISIA VULGARIS POLLEN
     Indication: Product used for unknown indication
     Dosage: UNK
     Dates: start: 202208
  12. SALSOLA KALI POLLEN [Suspect]
     Active Substance: SALSOLA KALI POLLEN
     Indication: Product used for unknown indication
     Dosage: UNK
     Dates: start: 202208
  13. RUMEX ACETOSELLA POLLEN [Suspect]
     Active Substance: RUMEX ACETOSELLA POLLEN
     Indication: Product used for unknown indication
     Dosage: UNK
     Dates: start: 202208
  14. URTICA DIOICA POLLEN [Suspect]
     Active Substance: URTICA DIOICA POLLEN
     Indication: Product used for unknown indication
     Dosage: UNK
     Dates: start: 202208
  15. AMBROSIA PSILOSTACHYA POLLEN [Suspect]
     Active Substance: AMBROSIA PSILOSTACHYA POLLEN
     Indication: Product used for unknown indication
     Dosage: UNK
     Dates: start: 202208
  16. ALNUS INCANA SUBSP. RUGOSA POLLEN [Suspect]
     Active Substance: ALNUS INCANA SUBSP. RUGOSA POLLEN
     Indication: Product used for unknown indication
     Dosage: UNK
     Dates: start: 202208
  17. POPULUS DELTOIDES POLLEN [Suspect]
     Active Substance: POPULUS DELTOIDES POLLEN
     Indication: Product used for unknown indication
     Dosage: UNK
     Dates: start: 202208
  18. ACER RUBRUM POLLEN [Suspect]
     Active Substance: ACER RUBRUM POLLEN
     Indication: Product used for unknown indication
     Dosage: UNK
     Dates: start: 202208
  19. FRAXINUS AMERICANA POLLEN [Suspect]
     Active Substance: FRAXINUS AMERICANA POLLEN
     Indication: Product used for unknown indication
     Dosage: UNK
     Dates: start: 202208
  20. ALAVERT ALLERGY [Concomitant]
     Active Substance: LORATADINE
     Dosage: 10 MILLIGRAM, PRN
     Route: 048
  21. AZELASTINE [Concomitant]
     Active Substance: AZELASTINE\AZELASTINE HYDROCHLORIDE
     Dosage: UNK UNK, PRN
     Route: 045
  22. FAMOTIDINE [Concomitant]
     Active Substance: FAMOTIDINE
     Dosage: 10 MILLIGRAM
     Route: 048
  23. ASCORBIC ACID [Concomitant]
     Active Substance: ASCORBIC ACID
     Dosage: CHEWABLE
     Route: 048
  24. VITAMIN D3 [Concomitant]
     Active Substance: CHOLECALCIFEROL
     Dosage: 25 MICROGRAM
     Route: 048

REACTIONS (3)
  - Anaphylactic reaction [Recovered/Resolved]
  - Drug ineffective [Unknown]
  - Expired product administered [Unknown]

NARRATIVE: CASE EVENT DATE: 20231108
